FAERS Safety Report 15905726 (Version 1)
Quarter: 2019Q1

REPORT INFORMATION
  Report Type: Spontaneous
  Country: US (occurrence: US)
  Receive Date: 20190202
  Receipt Date: 20190202
  Transmission Date: 20190417
  Serious: Yes (Other)
  Sender: FDA-Public Use
  Company Number: None

PATIENT
  Sex: Female

DRUGS (4)
  1. PERI-COLACE [Concomitant]
     Active Substance: CASANTHRANOL\DOCUSATE SODIUM
  2. SERTRALINE [Suspect]
     Active Substance: SERTRALINE HYDROCHLORIDE
     Indication: ANXIETY
     Dosage: ?          QUANTITY:1 TABLET(S);?
     Route: 048
  3. METHIMAZOLE 2.5MG [Concomitant]
  4. SERTRALINE [Suspect]
     Active Substance: SERTRALINE HYDROCHLORIDE
     Indication: PANIC ATTACK
     Dosage: ?          QUANTITY:1 TABLET(S);?
     Route: 048

REACTIONS (10)
  - Constipation [None]
  - Flatulence [None]
  - Eructation [None]
  - Astigmatism [None]
  - Visual impairment [None]
  - Gastrointestinal sounds abnormal [None]
  - Abdominal distension [None]
  - Impaired gastric emptying [None]
  - Dyspepsia [None]
  - Abdominal pain upper [None]

NARRATIVE: CASE EVENT DATE: 20161023
